FAERS Safety Report 5710818-0 (Version None)
Quarter: 2008Q2

REPORT INFORMATION
  Report Type: 
  Country: None (occurrence: None)
  Receive Date: 20080417
  Receipt Date: 20080417
  Transmission Date: 20081010
  Serious: Yes (Hospitalization)
  Sender: FDA-Public Use
  Company Number: None

PATIENT
  Age: 70 Year
  Sex: Male
  Weight: 97.5 kg

DRUGS (1)
  1. ENOXAPARIN SODIUM [Suspect]
     Indication: THROMBOSIS PROPHYLAXIS
     Dosage: 100MG BID SQ
     Route: 058
     Dates: start: 20080401, end: 20080406

REACTIONS (1)
  - RETROPERITONEAL HAEMATOMA [None]
